FAERS Safety Report 21615825 (Version 1)
Quarter: 2022Q4

REPORT INFORMATION
  Report Type: Spontaneous
  Country: FR (occurrence: FR)
  Receive Date: 20221118
  Receipt Date: 20221118
  Transmission Date: 20230113
  Serious: Yes (Hospitalization)
  Sender: FDA-Public Use
  Company Number: None

PATIENT
  Age: 91 Year
  Sex: Male
  Weight: 75 kg

DRUGS (10)
  1. RISPERIDONE [Suspect]
     Active Substance: RISPERIDONE
     Indication: Product used for unknown indication
     Dosage: UNIT DOSE : 0.5 MG
     Route: 065
     Dates: start: 202210, end: 20221013
  2. RAMIPRIL [Concomitant]
     Active Substance: RAMIPRIL
     Indication: Product used for unknown indication
     Dosage: UNIT DOSE : 5 MG
  3. CYANOCOBALAMIN [Concomitant]
     Active Substance: CYANOCOBALAMIN
     Indication: Product used for unknown indication
  4. UMECLIDINIUM [Concomitant]
     Active Substance: UMECLIDINIUM
     Indication: Product used for unknown indication
  5. AFRICAN PLUM (EXTRACT FROM) [Concomitant]
     Indication: Product used for unknown indication
     Dosage: PRUNIER D^AFRIQUE (EXTRAIT DE) , DURATION : 5 DAYS
     Dates: start: 20221013, end: 20221018
  6. TIOTROPIUM [Concomitant]
     Active Substance: TIOTROPIUM
     Indication: Product used for unknown indication
  7. FOLIC ACID [Concomitant]
     Active Substance: FOLIC ACID
     Indication: Product used for unknown indication
     Dosage: ACIDE FOLIQUE
  8. ENOXAPARIN SODIUM [Concomitant]
     Active Substance: ENOXAPARIN SODIUM
     Indication: Product used for unknown indication
     Dosage: ENOXAPARINE SODIQUE ((MAMMIFERE/PORC/MUQUEUSE INTESTINALE))
     Dates: start: 20221012
  9. ALBUTEROL [Concomitant]
     Active Substance: ALBUTEROL
     Indication: Product used for unknown indication
  10. SERENOA REPENS (LIPIDO-STEROL EXTRACT OF) [Concomitant]
     Indication: Product used for unknown indication
     Dosage: SERENOA REPENS (EXTRAIT LIPIDO-STEROLIQUE DE)

REACTIONS (2)
  - Fall [Recovered/Resolved]
  - Hallucination [Recovered/Resolved]

NARRATIVE: CASE EVENT DATE: 20221007
